FAERS Safety Report 6335743-6 (Version None)
Quarter: 2009Q3

REPORT INFORMATION
  Report Type: 
  Country: None (occurrence: None)
  Receive Date: 20090828
  Receipt Date: 20090817
  Transmission Date: 20100115
  Serious: Yes (Other)
  Sender: FDA-Public Use
  Company Number: 2009AP003337

PATIENT
  Age: 56 Year
  Sex: Female

DRUGS (6)
  1. FLUVOXAMINE MALEATE [Suspect]
     Indication: DEPRESSION
     Dosage: 50 MG; QD; PO
     Route: 048
     Dates: start: 20080801
  2. FLUVOXAMINE MALEATE [Suspect]
     Indication: OBSESSIVE-COMPULSIVE DISORDER
     Dosage: 50 MG; QD; PO
     Route: 048
     Dates: start: 20080801
  3. ESTRADIOL [Concomitant]
  4. STEROID ANTIBACTERIALS [Concomitant]
  5. PANTOPRAZOLE SODIUM [Concomitant]
  6. CITALOPRAM HYDROBROMIDE [Concomitant]

REACTIONS (3)
  - ENZYME ACTIVITY DECREASED [None]
  - HYPOAESTHESIA [None]
  - PARAESTHESIA [None]
